FAERS Safety Report 5259556-1 (Version None)
Quarter: 2007Q1

REPORT INFORMATION
  Report Type: 
  Country: None (occurrence: None)
  Receive Date: 20070306
  Receipt Date: 20070301
  Transmission Date: 20070707
  Serious: Yes (Other)
  Sender: FDA-Public Use
  Company Number: THQ2007A00175

PATIENT
  Sex: Female

DRUGS (1)
  1. LANSOPRAZOLE [Suspect]
     Dosage: UNK PER ORAL
     Route: 048

REACTIONS (2)
  - PULMONARY HYPERTENSION [None]
  - SARCOIDOSIS [None]
